FAERS Safety Report 24058651 (Version 1)
Quarter: 2024Q3

REPORT INFORMATION
  Report Type: Spontaneous
  Country: GB (occurrence: GB)
  Receive Date: 20240708
  Receipt Date: 20240708
  Transmission Date: 20241016
  Serious: Yes (Other)
  Sender: SANOFI AVENTIS
  Company Number: None

PATIENT
  Sex: Female

DRUGS (3)
  1. DUPIXENT [Suspect]
     Active Substance: DUPILUMAB
     Indication: Eczema
     Dosage: 300 MG, QOW
     Dates: start: 20240326
  2. PROPRANOLOL [Concomitant]
     Active Substance: PROPRANOLOL HYDROCHLORIDE
     Indication: Anxiety
     Dosage: UNK
  3. MIRTAZAPINE [Concomitant]
     Active Substance: MIRTAZAPINE
     Indication: Depression
     Dosage: UNK

REACTIONS (3)
  - Asthenopia [Recovered/Resolved]
  - Migraine [Recovered/Resolved]
  - Nausea [Recovered/Resolved]

NARRATIVE: CASE EVENT DATE: 20240101
